FAERS Safety Report 7392738-1 (Version None)
Quarter: 2011Q2

REPORT INFORMATION
  Report Type: 
  Country: None (occurrence: None)
  Receive Date: 20110404
  Receipt Date: 20110324
  Transmission Date: 20111010
  Serious: Yes (Hospitalization)
  Sender: FDA-Public Use
  Company Number: FR-ASTRAZENECA-2011SE17179

PATIENT
  Age: 47 Year
  Sex: Male
  Weight: 72 kg

DRUGS (16)
  1. CORTANCYL [Suspect]
     Dates: start: 20070101, end: 20080401
  2. CORTANCYL [Suspect]
     Dates: start: 20100101, end: 20110225
  3. DIFFU K [Concomitant]
  4. CACIT D3 [Concomitant]
  5. ENDOXAN [Concomitant]
     Dates: start: 20101126
  6. IMUREL [Concomitant]
     Dates: start: 20081001
  7. ENDOXAN [Concomitant]
     Dates: start: 20101114
  8. NEXIUM [Suspect]
     Route: 048
     Dates: start: 20090701, end: 20110225
  9. IMUREL [Concomitant]
     Dates: end: 20090701
  10. IMUREL [Concomitant]
     Dates: end: 20100101
  11. IMUREL [Concomitant]
     Dates: start: 20101001, end: 20101030
  12. METHOTREXATE [Concomitant]
     Dosage: UNKNOWN DOSE WEEKLY
     Dates: start: 20100301
  13. ENDOXAN [Concomitant]
     Dates: start: 20101218
  14. ENDOXAN [Concomitant]
     Dates: start: 20110106
  15. METHOTREXATE [Concomitant]
     Dates: start: 20100101
  16. ENDOXAN [Concomitant]
     Dates: start: 20101030

REACTIONS (2)
  - EOSINOPHILIA [None]
  - MYALGIA [None]
